FAERS Safety Report 14080586 (Version 2)
Quarter: 2017Q4

REPORT INFORMATION
  Report Type: Spontaneous
  Country: JP (occurrence: JP)
  Receive Date: 20171012
  Receipt Date: 20171227
  Transmission Date: 20180321
  Serious: Yes (Other)
  Sender: FDA-Public Use
  Company Number: JP-MYLANLABS-2017M1065034

PATIENT
  Age: 60 Year
  Sex: Male

DRUGS (10)
  1. CLOZAPINE. [Suspect]
     Active Substance: CLOZAPINE
     Dosage: 200 MG, UNK
     Route: 048
  2. CLOZAPINE. [Suspect]
     Active Substance: CLOZAPINE
     Dosage: 450 MG, UNK
     Route: 048
  3. CLOZAPINE. [Suspect]
     Active Substance: CLOZAPINE
     Dosage: 500 MG, UNK
     Route: 048
  4. VANCOMYCIN [Suspect]
     Active Substance: VANCOMYCIN
     Indication: PRODUCT USED FOR UNKNOWN INDICATION
     Dosage: UNK
  5. CLOZAPINE. [Suspect]
     Active Substance: CLOZAPINE
     Dosage: 250 MG, UNK
     Route: 048
  6. MEROPENEM. [Concomitant]
     Active Substance: MEROPENEM
     Indication: PRODUCT USED FOR UNKNOWN INDICATION
     Dosage: UNK
     Route: 005
  7. CLOZAPINE. [Suspect]
     Active Substance: CLOZAPINE
     Indication: SCHIZOPHRENIA
     Dosage: UNK
     Route: 048
  8. CLOZAPINE. [Suspect]
     Active Substance: CLOZAPINE
     Dosage: 350 MG, UNK
     Route: 048
  9. CLOZAPINE. [Suspect]
     Active Substance: CLOZAPINE
     Dosage: 300 MG, UNK
     Route: 048
  10. CLOZAPINE. [Suspect]
     Active Substance: CLOZAPINE
     Dosage: 400 MG, UNK
     Route: 048

REACTIONS (2)
  - Mental status changes [Unknown]
  - Renal impairment [Recovering/Resolving]
